FAERS Safety Report 5498261-3 (Version None)
Quarter: 2007Q4

REPORT INFORMATION
  Report Type: 
  Country: None (occurrence: None)
  Receive Date: 20071025
  Receipt Date: 20070515
  Transmission Date: 20080405
  Serious: No
  Sender: FDA-Public Use
  Company Number: A0648354A

PATIENT
  Age: 62 Year
  Sex: Female

DRUGS (3)
  1. ADVAIR DISKUS 100/50 [Suspect]
     Indication: DRUG USE FOR UNKNOWN INDICATION
     Route: 055
     Dates: start: 20050801
  2. POTASSIUM CHLORIDE [Concomitant]
  3. FLUTICASONE PROPIONATE [Concomitant]

REACTIONS (2)
  - PHARMACEUTICAL PRODUCT COMPLAINT [None]
  - WHEEZING [None]
